FAERS Safety Report 26131865 (Version 1)
Quarter: 2025Q4

REPORT INFORMATION
  Report Type: Spontaneous
  Country: US (occurrence: US)
  Receive Date: 20251208
  Receipt Date: 20251208
  Transmission Date: 20260117
  Serious: No
  Sender: AMGEN
  Company Number: US-AMGEN-USASP2025238100

PATIENT
  Age: 61 Year
  Sex: Male

DRUGS (1)
  1. REPATHA [Suspect]
     Active Substance: EVOLOCUMAB
     Indication: Blood cholesterol increased
     Dosage: 140 MILLIGRAM, Q2WK
     Route: 058
     Dates: start: 202503

REACTIONS (7)
  - Sneezing [Unknown]
  - Gastrooesophageal reflux disease [Unknown]
  - Device difficult to use [Unknown]
  - Device use error [Unknown]
  - Incorrect dose administered by device [Unknown]
  - Incorrect disposal of product [Unknown]
  - Cough [Unknown]

NARRATIVE: CASE EVENT DATE: 20251201
